FAERS Safety Report 5088896-4 (Version None)
Quarter: 2006Q3

REPORT INFORMATION
  Report Type: 
  Country: None (occurrence: None)
  Receive Date: 20060824
  Receipt Date: 20060824
  Transmission Date: 20061208
  Serious: Yes (Hospitalization, Disabling)
  Sender: FDA-Public Use
  Company Number: None

PATIENT
  Age: 66 Year
  Sex: Female
  Weight: 74.8435 kg

DRUGS (1)
  1. LAMICTAL [Suspect]
     Indication: DEPRESSION
     Dosage: 1,2 + 3 THEN 4 PER WEEK DAILY MOUTH
     Route: 048

REACTIONS (5)
  - GENITAL PRURITUS FEMALE [None]
  - HERPES SIMPLEX [None]
  - NAIL AVULSION [None]
  - RASH GENERALISED [None]
  - SKIN EXFOLIATION [None]
